FAERS Safety Report 15338664 (Version 1)
Quarter: 2018Q3

REPORT INFORMATION
  Report Type: Spontaneous
  Country: US (occurrence: US)
  Receive Date: 20180831
  Receipt Date: 20180831
  Transmission Date: 20181010
  Serious: No
  Sender: FDA-Public Use
  Company Number: US-INTERCEPT-PMOCA2018001088

PATIENT

DRUGS (5)
  1. BIOTIN [Concomitant]
     Active Substance: BIOTIN
  2. URSODIOL. [Concomitant]
     Active Substance: URSODIOL
  3. LEVOTHYROXINE. [Concomitant]
     Active Substance: LEVOTHYROXINE
  4. IRON [Concomitant]
     Active Substance: IRON
  5. OCALIVA [Suspect]
     Active Substance: OBETICHOLIC ACID
     Indication: PRIMARY BILIARY CHOLANGITIS
     Dosage: 5 MG, QD
     Route: 048
     Dates: start: 20180510

REACTIONS (4)
  - Rash pruritic [Unknown]
  - Arthralgia [Unknown]
  - Oedema peripheral [Unknown]
  - Abdominal pain upper [Unknown]

NARRATIVE: CASE EVENT DATE: 2018
